FAERS Safety Report 7340759-7 (Version None)
Quarter: 2011Q1

REPORT INFORMATION
  Report Type: 
  Country: None (occurrence: None)
  Receive Date: 20110309
  Receipt Date: 20110304
  Transmission Date: 20110831
  Serious: Yes (Hospitalization)
  Sender: FDA-Public Use
  Company Number: GB-PFIZER INC-2011049032

PATIENT
  Age: 78 Year
  Sex: Male
  Weight: 66 kg

DRUGS (13)
  1. FLUCLOXACILLIN [Concomitant]
  2. METFORMIN [Concomitant]
  3. NITROFURANTOIN [Concomitant]
     Indication: URINARY TRACT INFECTION
     Dosage: UNK
     Dates: start: 20101118, end: 20101124
  4. GENTAMICIN [Suspect]
     Indication: BACTERIAL INFECTION
     Dosage: 320 MG, 1X/DAY
     Route: 042
     Dates: start: 20101206, end: 20101229
  5. CIPROFLOXACIN [Concomitant]
     Indication: URINARY TRACT INFECTION
     Dosage: UNK
     Dates: start: 20101130, end: 20101203
  6. GLICLAZIDE [Concomitant]
  7. TRIMETHOPRIM [Concomitant]
     Indication: URINARY TRACT INFECTION
     Dosage: UNK
     Dates: start: 20101117, end: 20101124
  8. FERROUS FUMARATE [Concomitant]
  9. LISINOPRIL [Concomitant]
  10. OMEPRAZOLE [Concomitant]
  11. SIMVASTATIN [Concomitant]
  12. TAZOCIN [Suspect]
     Indication: BACTERIAL INFECTION
     Dosage: 4.5 MG, 3X/DAY
     Route: 042
     Dates: start: 20101206, end: 20101229
  13. FUROSEMIDE [Concomitant]

REACTIONS (4)
  - PAIN [None]
  - NASOPHARYNGITIS [None]
  - NEUTROPENIA [None]
  - COUGH [None]
